FAERS Safety Report 9946913 (Version 1)
Quarter: 2014Q1

REPORT INFORMATION
  Report Type: Report from Study
  Country: US (occurrence: US)
  Receive Date: 20140303
  Receipt Date: 20140303
  Transmission Date: 20141002
  Serious: No
  Sender: FDA-Public Use
  Company Number: US-ABBVIE-13P-163-1060205-00

PATIENT
  Age: 53 Year
  Sex: Female

DRUGS (23)
  1. HUMIRA [Suspect]
     Indication: RHEUMATOID ARTHRITIS
     Route: 058
     Dates: start: 20130204
  2. HUMIRA [Suspect]
     Route: 058
  3. GABAPENTIN [Concomitant]
     Indication: NEURALGIA
  4. HYDROCHLOROTHIAZIDE [Concomitant]
     Indication: PRODUCT USED FOR UNKNOWN INDICATION
     Dosage: IN THE MORNING
  5. ALBUTEROL [Concomitant]
     Indication: DYSPNOEA
  6. PROVENTIL PLUS [Concomitant]
     Indication: DYSPNOEA
  7. FLEXERIL [Concomitant]
     Indication: PRODUCT USED FOR UNKNOWN INDICATION
     Dosage: 1-2 TABLETS
  8. ZANTAC [Concomitant]
     Indication: PRODUCT USED FOR UNKNOWN INDICATION
     Dosage: AT BEDTIME
  9. AMBIEN [Concomitant]
     Indication: PRODUCT USED FOR UNKNOWN INDICATION
     Dosage: AT BEDTIME
  10. NITROGLYCERIN [Concomitant]
     Indication: CHEST PAIN
     Route: 060
  11. PRO-AIR [Concomitant]
     Indication: DYSPNOEA
     Route: 055
  12. PRO-AIR [Concomitant]
     Indication: COUGH
  13. NORCO [Concomitant]
     Indication: PRODUCT USED FOR UNKNOWN INDICATION
     Dosage: 1-2 TABLETS EVERY 6 HOURS
  14. FOLIC ACID [Concomitant]
     Indication: PRODUCT USED FOR UNKNOWN INDICATION
  15. CODEINE COUGH SYRUP [Concomitant]
     Indication: COUGH
     Dosage: 100 MG/5 ML- 1 TSP EVERY 6 HOUS PRN
  16. PRILOSEC [Concomitant]
     Indication: PRODUCT USED FOR UNKNOWN INDICATION
  17. VITAMIN D3 [Concomitant]
     Indication: PRODUCT USED FOR UNKNOWN INDICATION
  18. METOPROLOL [Concomitant]
     Indication: PRODUCT USED FOR UNKNOWN INDICATION
  19. MOTRIN [Concomitant]
     Indication: PAIN
  20. EFFEXOR XR [Concomitant]
     Indication: PRODUCT USED FOR UNKNOWN INDICATION
  21. AMMONIUM LACTATE LOTION [Concomitant]
     Indication: DRY SKIN
     Route: 061
  22. METFORMIN [Concomitant]
     Indication: DECREASED APPETITE
  23. PREDNISONE [Concomitant]
     Indication: PRODUCT USED FOR UNKNOWN INDICATION

REACTIONS (5)
  - Dry skin [Not Recovered/Not Resolved]
  - Glucose tolerance impaired [Not Recovered/Not Resolved]
  - Hypertension [Not Recovered/Not Resolved]
  - Weight abnormal [Not Recovered/Not Resolved]
  - Fatigue [Unknown]
